APPROVED DRUG PRODUCT: CLARITHROMYCIN
Active Ingredient: CLARITHROMYCIN
Strength: 500MG
Dosage Form/Route: TABLET;ORAL
Application: A202710 | Product #002 | TE Code: AB
Applicant: NOVITIUM PHARMA LLC
Approved: Jun 10, 2013 | RLD: No | RS: No | Type: RX